FAERS Safety Report 9227851 (Version 2)
Quarter: 2013Q2

REPORT INFORMATION
  Report Type: Report from Study
  Country: BR (occurrence: BR)
  Receive Date: 20130412
  Receipt Date: 20130514
  Transmission Date: 20140414
  Serious: Yes (Other)
  Sender: FDA-Public Use
  Company Number: PHHY2013BR035160

PATIENT
  Sex: Female

DRUGS (6)
  1. CATAFLAM [Suspect]
     Indication: PHARYNGITIS
     Dosage: 3 DF, QD
     Route: 048
     Dates: start: 201304, end: 201304
  2. ENALABAL [Concomitant]
     Indication: BLOOD PRESSURE FLUCTUATION
     Dosage: 2 DF, QD
     Route: 048
  3. BONECAL D [Concomitant]
     Indication: OSTEOPOROSIS
     Dosage: 2 DF, QD
     Route: 048
     Dates: start: 201304
  4. OSTEOFORM//ALENDRONATE SODIUM [Concomitant]
     Indication: OSTEOPOROSIS
     Dosage: 1 DF, QW
  5. METHOTREXATE [Concomitant]
     Indication: OSTEOPOROSIS
     Dosage: 3 DF, QD
     Route: 048
  6. FOLIC ACID [Concomitant]
     Indication: OSTEOPOROSIS
     Dosage: 1 DF, QW

REACTIONS (12)
  - Candida infection [Recovered/Resolved]
  - Renal pain [Recovered/Resolved]
  - Asthenia [Recovered/Resolved]
  - Dry mouth [Recovered/Resolved]
  - Hyperhidrosis [Recovered/Resolved]
  - Heart rate increased [Recovered/Resolved]
  - Erythema [Recovered/Resolved]
  - Abdominal pain upper [Recovered/Resolved]
  - Swelling face [Recovered/Resolved]
  - Headache [Recovered/Resolved]
  - Vomiting [Recovered/Resolved]
  - Swelling [Recovering/Resolving]
